FAERS Safety Report 8065522-3 (Version None)
Quarter: 2012Q1

REPORT INFORMATION
  Report Type: 
  Country: None (occurrence: None)
  Receive Date: 20120124
  Receipt Date: 20120118
  Transmission Date: 20120608
  Serious: Yes (Life-Threatening, Hospitalization)
  Sender: FDA-Public Use
  Company Number: FR-ASTELLAS-2012EU000522

PATIENT
  Sex: Male

DRUGS (2)
  1. PROGRAF [Suspect]
     Indication: NEPHROTIC SYNDROME
     Dosage: 3.5 MG, BID
     Route: 048
     Dates: start: 20111001, end: 20111201
  2. PROGRAF [Suspect]
     Dosage: 3 MG, BID
     Route: 048
     Dates: start: 20111201, end: 20120101

REACTIONS (6)
  - HYPERGLYCAEMIA [None]
  - HYPERKALAEMIA [None]
  - RENAL FAILURE [None]
  - OFF LABEL USE [None]
  - DEHYDRATION [None]
  - DIABETIC HYPEROSMOLAR COMA [None]
